FAERS Safety Report 7045390-9 (Version None)
Quarter: 2010Q4

REPORT INFORMATION
  Report Type: 
  Country: None (occurrence: None)
  Receive Date: 20101014
  Receipt Date: 20101008
  Transmission Date: 20110411
  Serious: Yes (Other)
  Sender: FDA-Public Use
  Company Number: US-PERRIGO-10US013774

PATIENT
  Age: 42 Year
  Sex: Female
  Weight: 74.376 kg

DRUGS (4)
  1. IBUPROFEN 200MG-DIPHENHYDRAMINE CITRATE 38 MG 8K7 [Suspect]
     Indication: INFLUENZA
     Dosage: 2 CAPLETS, DAILY
     Route: 048
     Dates: start: 20101007, end: 20101008
  2. IBUPROFEN 200MG-DIPHENHYDRAMINE CITRATE 38 MG 8K7 [Suspect]
     Indication: PYREXIA
  3. IBUPROFEN 200MG-DIPHENHYDRAMINE CITRATE 38 MG 8K7 [Suspect]
     Indication: INFLUENZA IMMUNISATION
  4. INFLUENZA VACCINE [Concomitant]
     Indication: PROPHYLAXIS
     Dosage: UNK
     Route: 030
     Dates: start: 20101007, end: 20101007

REACTIONS (4)
  - OFF LABEL USE [None]
  - SOMNOLENCE [None]
  - TREMOR [None]
  - VISION BLURRED [None]
